FAERS Safety Report 14368929 (Version 1)
Quarter: 2018Q1

REPORT INFORMATION
  Report Type: Spontaneous
  Country: US (occurrence: US)
  Receive Date: 20180109
  Receipt Date: 20180109
  Transmission Date: 20180509
  Serious: No
  Sender: FDA-Public Use
  Company Number: US-DRREDDYS-USA/USA/17/0088276

PATIENT
  Sex: Female

DRUGS (4)
  1. NICOTINE. [Suspect]
     Active Substance: NICOTINE
     Indication: SMOKING CESSATION THERAPY
     Route: 062
  2. NICOTINE. [Suspect]
     Active Substance: NICOTINE
     Route: 062
  3. NICOTINE. [Suspect]
     Active Substance: NICOTINE
     Route: 062
  4. NICOTINE. [Suspect]
     Active Substance: NICOTINE
     Route: 062
     Dates: start: 201703

REACTIONS (4)
  - Treatment noncompliance [Unknown]
  - Nicotine dependence [Unknown]
  - Incorrect dose administered [Unknown]
  - Expired product administered [Unknown]
